FAERS Safety Report 6527976-0 (Version None)
Quarter: 2010Q1

REPORT INFORMATION
  Report Type: 
  Country: None (occurrence: None)
  Receive Date: 20100105
  Receipt Date: 20100105
  Transmission Date: 20100710
  Serious: Yes (Hospitalization)
  Sender: FDA-Public Use
  Company Number: None

PATIENT
  Sex: Female
  Weight: 53.1 kg

DRUGS (1)
  1. PULMOZYME [Suspect]

REACTIONS (12)
  - BODY TEMPERATURE INCREASED [None]
  - CHILLS [None]
  - DEHYDRATION [None]
  - DRY SKIN [None]
  - HEART RATE INCREASED [None]
  - HYPOPHAGIA [None]
  - LIP ULCERATION [None]
  - MOUTH ULCERATION [None]
  - NAUSEA [None]
  - OXYGEN SATURATION DECREASED [None]
  - TACHYCARDIA [None]
  - VOMITING [None]
